FAERS Safety Report 15857213 (Version 2)
Quarter: 2019Q1

REPORT INFORMATION
  Report Type: Spontaneous
  Country: ES (occurrence: ES)
  Receive Date: 20190123
  Receipt Date: 20190124
  Transmission Date: 20190417
  Serious: Yes (Other)
  Sender: FDA-Public Use
  Company Number: ES-ACCORD-102617

PATIENT
  Age: 62 Year
  Sex: Male

DRUGS (8)
  1. TRAZODONE [Suspect]
     Active Substance: TRAZODONE HYDROCHLORIDE
     Indication: INSOMNIA
  2. DILTIAZEM. [Interacting]
     Active Substance: DILTIAZEM
     Indication: HYPERTROPHIC CARDIOMYOPATHY
     Dosage: 120 MG EVERY 12 HOURS
  3. OXYCODONE/NALOXONE [Interacting]
     Active Substance: NALOXONE HYDROCHLORIDE\OXYCODONE HYDROCHLORIDE
     Indication: MYOFASCIAL PAIN SYNDROME
     Dosage: 15 / 7.5 MG EVERY 12 HOURS
  4. SERTRALINE [Interacting]
     Active Substance: SERTRALINE HYDROCHLORIDE
     Indication: PSYCHOTIC DISORDER
     Dosage: 50 MG
  5. ACETYLSALICYLIC ACID [Interacting]
     Active Substance: ASPIRIN
     Indication: HYPERTROPHIC CARDIOMYOPATHY
     Dosage: 100 MG DAILY
  6. DIAZEPAM. [Interacting]
     Active Substance: DIAZEPAM
     Indication: INSOMNIA
     Dosage: 5 MG
  7. AMITRIPTYLINE [Interacting]
     Active Substance: AMITRIPTYLINE
     Indication: MYOFASCIAL PAIN SYNDROME
     Dosage: 10 MG
  8. ATENOLOL/ATENOLOL HYDROCHLORIDE [Interacting]
     Active Substance: ATENOLOL HYDROCHLORIDE
     Indication: ESSENTIAL HYPERTENSION
     Dosage: 100 MG AT BREAKFAST AND 50 MG AT DINNER

REACTIONS (9)
  - Drug interaction [Unknown]
  - Loss of consciousness [Unknown]
  - Tandem gait test abnormal [None]
  - Morbid thoughts [None]
  - Romberg test positive [None]
  - Anal incontinence [None]
  - Incontinence [Unknown]
  - Drug ineffective [None]
  - Fall [Unknown]
